FAERS Safety Report 20574543 (Version 1)
Quarter: 2022Q1

REPORT INFORMATION
  Report Type: Spontaneous
  Country: US (occurrence: US)
  Receive Date: 20220309
  Receipt Date: 20220309
  Transmission Date: 20220423
  Serious: Yes (Hospitalization, Other)
  Sender: FDA-Public Use
  Company Number: US-MALLINCKRODT-T202201017

PATIENT
  Age: 10 Month
  Sex: Female

DRUGS (6)
  1. INOMAX [Suspect]
     Active Substance: NITRIC OXIDE
     Indication: Hypoxia
     Dosage: UNK, INHALATION USE
     Route: 055
     Dates: start: 2021
  2. INOMAX [Suspect]
     Active Substance: NITRIC OXIDE
     Indication: Oxygen saturation decreased
  3. SILDENAFIL [Concomitant]
     Active Substance: SILDENAFIL
     Indication: Hypoxia
     Dosage: UNK
     Route: 065
     Dates: start: 2021
  4. SILDENAFIL [Concomitant]
     Active Substance: SILDENAFIL
     Indication: Oxygen saturation decreased
  5. MAGNESIUM [Concomitant]
     Active Substance: MAGNESIUM
     Indication: Hypoxia
     Dosage: UNK
     Route: 065
     Dates: start: 2021
  6. MAGNESIUM [Concomitant]
     Active Substance: MAGNESIUM
     Indication: Oxygen saturation decreased

REACTIONS (8)
  - Pneumonia [Unknown]
  - Cough [Unknown]
  - Dyspnoea [Unknown]
  - Chronic respiratory disease [Unknown]
  - Scar [Unknown]
  - Atelectasis [Unknown]
  - Product use in unapproved indication [Unknown]
  - Product use issue [Unknown]

NARRATIVE: CASE EVENT DATE: 20210101
